FAERS Safety Report 25587851 (Version 2)
Quarter: 2025Q3

REPORT INFORMATION
  Report Type: Spontaneous
  Country: RS (occurrence: EU)
  Receive Date: 20250721
  Receipt Date: 20250805
  Transmission Date: 20251020
  Serious: Yes (Hospitalization)
  Sender: JOHNSON AND JOHNSON
  Company Number: RS-JNJFOC-20250725126

PATIENT
  Age: 77 Year
  Sex: Male

DRUGS (2)
  1. XARELTO [Suspect]
     Active Substance: RIVAROXABAN
     Indication: Thrombosis
     Dosage: 15 MG, QD
     Route: 048
     Dates: start: 2020, end: 20240817
  2. IMETELSTAT [Concomitant]
     Active Substance: IMETELSTAT
     Indication: Myelodysplastic syndrome
     Dates: start: 20200817, end: 20240808

REACTIONS (3)
  - Fall [Recovered/Resolved with Sequelae]
  - Craniocerebral injury [Recovered/Resolved with Sequelae]
  - Subdural haemorrhage [Recovered/Resolved with Sequelae]

NARRATIVE: CASE EVENT DATE: 20240817
